FAERS Safety Report 5363893-X (Version None)
Quarter: 2007Q2

REPORT INFORMATION
  Report Type: 
  Country: None (occurrence: None)
  Receive Date: 20070530
  Receipt Date: 20070108
  Transmission Date: 20071010
  Serious: No
  Sender: FDA-Public Use
  Company Number: 2007PV028016

PATIENT
  Age: 62 Year
  Sex: Female

DRUGS (2)
  1. BYETTA [Suspect]
     Indication: GLUCOSE TOLERANCE IMPAIRED
     Dosage: 5 MCG; BID; SC
     Route: 058
     Dates: start: 20070101
  2. FORTAMET [Concomitant]

REACTIONS (5)
  - COUGH [None]
  - FEELING ABNORMAL [None]
  - HYPERHIDROSIS [None]
  - INCORRECT DOSE ADMINISTERED [None]
  - VOMITING [None]
